FAERS Safety Report 8030959-5 (Version None)
Quarter: 2012Q1

REPORT INFORMATION
  Report Type: 
  Country: None (occurrence: None)
  Receive Date: 20120109
  Receipt Date: 20120104
  Transmission Date: 20120608
  Serious: Yes (Hospitalization)
  Sender: FDA-Public Use
  Company Number: CH-BRISTOL-MYERS SQUIBB COMPANY-16333320

PATIENT
  Age: 58 Year
  Sex: Male

DRUGS (3)
  1. CETUXIMAB [Suspect]
     Indication: OESOPHAGEAL CARCINOMA
     Dosage: LAST DOSE:21DEC11
     Route: 042
     Dates: start: 20111129
  2. CISPLATIN [Suspect]
     Indication: OESOPHAGEAL CARCINOMA
     Dosage: LAST DOSE:21DEC11
     Route: 042
     Dates: start: 20111129
  3. DOCETAXEL [Suspect]
     Indication: OESOPHAGEAL CARCINOMA
     Dosage: LAST DOSE:21DEC11
     Route: 042
     Dates: start: 20111129

REACTIONS (2)
  - THROMBOCYTOPENIA [None]
  - PYREXIA [None]
